FAERS Safety Report 11990114 (Version 1)
Quarter: 2016Q1

REPORT INFORMATION
  Report Type: Report from Study
  Country: US (occurrence: US)
  Receive Date: 20160202
  Receipt Date: 20160202
  Transmission Date: 20160526
  Serious: Yes (Other)
  Sender: FDA-Public Use
  Company Number: US-BRISTOL-MYERS SQUIBB COMPANY-BMS-2016-004434

PATIENT
  Sex: Female

DRUGS (2)
  1. ABATACEPT [Suspect]
     Active Substance: ABATACEPT
     Indication: RHEUMATOID ARTHRITIS
     Dosage: UNK
     Route: 058
     Dates: start: 201507
  2. ABATACEPT [Suspect]
     Active Substance: ABATACEPT
     Indication: RHEUMATOID ARTHRITIS
     Route: 042

REACTIONS (11)
  - Foot fracture [Unknown]
  - Pain [Unknown]
  - Vision blurred [Unknown]
  - Lower limb fracture [Unknown]
  - Nervousness [Unknown]
  - Joint swelling [Unknown]
  - Hypotension [Unknown]
  - Heart rate increased [Unknown]
  - Fall [Unknown]
  - Peripheral swelling [Unknown]
  - Drug dose omission [Unknown]
